FAERS Safety Report 6971629-1 (Version None)
Quarter: 2010Q3

REPORT INFORMATION
  Report Type: 
  Country: None (occurrence: None)
  Receive Date: 20100908
  Receipt Date: 20100901
  Transmission Date: 20110219
  Serious: Yes (Death)
  Sender: FDA-Public Use
  Company Number: US-ELI_LILLY_AND_COMPANY-US201009001008

PATIENT

DRUGS (2)
  1. GEMCITABINE HCL [Suspect]
     Indication: PANCREATIC CARCINOMA
     Dosage: 1000 MG/M2, UNK
  2. BEVACIZUMAB [Concomitant]
     Indication: PANCREATIC CARCINOMA
     Dosage: 10 MG/KG, UNK

REACTIONS (1)
  - DEATH [None]
